FAERS Safety Report 8835650 (Version 1)
Quarter: 2012Q4

REPORT INFORMATION
  Report Type: Report from Study
  Country: JP (occurrence: JP)
  Receive Date: 20121011
  Receipt Date: 20121011
  Transmission Date: 20130627
  Serious: Yes (Hospitalization, Other)
  Sender: FDA-Public Use
  Company Number: JP-009507513-1210JPN001841

PATIENT
  Age: 63 Year
  Sex: Female

DRUGS (9)
  1. PEGINTRON [Suspect]
     Indication: HEPATITIS C
     Dosage: 1.5 Microgram per kilogram, qw
     Route: 058
     Dates: start: 20120605, end: 20120717
  2. REBETOL [Suspect]
     Indication: HEPATITIS C
     Dosage: 200 mg, qd
     Route: 048
     Dates: start: 20120605, end: 20120722
  3. TELAVIC [Suspect]
     Indication: HEPATITIS C
     Dosage: 2250 mg,qd
     Route: 048
     Dates: start: 20120605
  4. TELAVIC [Suspect]
     Dosage: 1500 mg, qd
     Route: 048
     Dates: start: 2012
  5. TELAVIC [Suspect]
     Dosage: 2250 mg, qd
     Route: 048
     Dates: end: 20120722
  6. GASTER [Concomitant]
     Indication: GASTRITIS
     Dosage: 10 mg, qd
     Route: 048
     Dates: start: 20120613
  7. ROCEPHIN [Concomitant]
     Dosage: 2 g, qd
     Dates: start: 20120722, end: 20120802
  8. RECOMODULIN [Concomitant]
     Dosage: 25600 dosage form,qd
     Dates: start: 20120722, end: 20120727
  9. METLIGINE [Concomitant]
     Indication: ORTHOSTATIC HYPOTENSION
     Dosage: 4 mg, qd
     Route: 048

REACTIONS (3)
  - Sepsis [Recovered/Resolved]
  - Disseminated intravascular coagulation [Recovered/Resolved]
  - Anaemia [Recovered/Resolved]
